FAERS Safety Report 8289833-1 (Version None)
Quarter: 2012Q2

REPORT INFORMATION
  Report Type: 
  Country: None (occurrence: None)
  Receive Date: 20120417
  Receipt Date: 20120412
  Transmission Date: 20120825
  Serious: No
  Sender: FDA-Public Use
  Company Number: US-PFIZER INC-2012091524

PATIENT
  Sex: Male

DRUGS (1)
  1. SUTENT [Suspect]
     Dosage: 50 MG DAILY ((2) 25MG CAPSULES DAILY)

REACTIONS (2)
  - NEOPLASM MALIGNANT [None]
  - DISEASE PROGRESSION [None]
